FAERS Safety Report 15487339 (Version 1)
Quarter: 2018Q4

REPORT INFORMATION
  Report Type: Spontaneous
  Country: GR (occurrence: GR)
  Receive Date: 20181011
  Receipt Date: 20181011
  Transmission Date: 20190205
  Serious: Yes (Other)
  Sender: FDA-Public Use
  Company Number: GR-ALKEM LABORATORIES LIMITED-GR-ALKEM-2018-06390

PATIENT
  Age: 26 Year
  Sex: Female

DRUGS (13)
  1. NATALIZUMAB [Concomitant]
     Active Substance: NATALIZUMAB
     Indication: MULTIPLE SCLEROSIS
     Dosage: UNK
     Route: 065
  2. CEFUROXIME AXETIL. [Suspect]
     Active Substance: CEFUROXIME AXETIL
     Indication: UROGENITAL INFECTION FUNGAL
  3. CIPROFLOXACIN. [Suspect]
     Active Substance: CIPROFLOXACIN
     Indication: UROGENITAL INFECTION BACTERIAL
     Dosage: UNK
     Route: 048
  4. AZITHROMYCIN ANHYDROUS. [Suspect]
     Active Substance: AZITHROMYCIN ANHYDROUS
     Indication: UROGENITAL INFECTION BACTERIAL
     Dosage: UNK
     Route: 048
  5. CLINDAMYCIN CREAM [Suspect]
     Active Substance: CLINDAMYCIN
     Indication: UROGENITAL INFECTION BACTERIAL
     Dosage: UNK
     Route: 061
  6. FENTICONAZOLE NITRATE [Suspect]
     Active Substance: FENTICONAZOLE NITRATE
     Indication: UROGENITAL INFECTION BACTERIAL
     Dosage: 600 MG, UNK
     Route: 067
  7. KETOCONAZOLE. [Suspect]
     Active Substance: KETOCONAZOLE
     Indication: UROGENITAL INFECTION FUNGAL
     Dosage: UNK
     Route: 067
  8. CEFUROXIME AXETIL. [Suspect]
     Active Substance: CEFUROXIME AXETIL
     Indication: UROGENITAL INFECTION BACTERIAL
     Dosage: 500 MG, BID
     Route: 048
  9. FENTICONAZOLE [Suspect]
     Active Substance: FENTICONAZOLE
     Indication: UROGENITAL INFECTION FUNGAL
  10. CLAVAM [Suspect]
     Active Substance: AMOXICILLIN\CLAVULANIC ACID
     Indication: UROGENITAL INFECTION BACTERIAL
     Dosage: UNK
     Route: 048
  11. ITRACONAZOLE. [Suspect]
     Active Substance: ITRACONAZOLE
     Indication: UROGENITAL INFECTION FUNGAL
     Dosage: UNK
     Route: 048
  12. CLOTRIMAZOLE. [Suspect]
     Active Substance: CLOTRIMAZOLE
     Indication: UROGENITAL INFECTION FUNGAL
     Dosage: UNK
     Route: 067
  13. CEFPROZIL. [Suspect]
     Active Substance: CEFPROZIL
     Indication: UROGENITAL INFECTION BACTERIAL
     Dosage: UNK
     Route: 048

REACTIONS (1)
  - Drug ineffective [Unknown]
